FAERS Safety Report 6025055-2 (Version None)
Quarter: 2008Q4

REPORT INFORMATION
  Report Type: 
  Country: None (occurrence: None)
  Receive Date: 20081230
  Receipt Date: 20081230
  Transmission Date: 20090506
  Serious: Yes (Hospitalization)
  Sender: FDA-Public Use
  Company Number: None

PATIENT
  Sex: Male

DRUGS (17)
  1. WARFARIN SODIUM [Suspect]
     Indication: ATRIAL FLUTTER
     Dosage: 5MG 2 X WEEKLY PO 10MG 5 X WEEKLY PO
     Route: 048
  2. ALLOPURINOL [Concomitant]
  3. FOLIC ACID [Concomitant]
  4. VIAGRA [Concomitant]
  5. METFORMIN HCL [Concomitant]
  6. LEVITRA [Concomitant]
  7. DIGOXIN [Concomitant]
  8. LISINOPRIL [Concomitant]
  9. LANTUS [Concomitant]
  10. COREG [Concomitant]
  11. LASIX [Concomitant]
  12. K DUR [Concomitant]
  13. ZAROXOLYN [Concomitant]
  14. GLIPIZIDE [Concomitant]
  15. PREDNISONE TAB [Concomitant]
  16. PHENERGAN W/ CODEINE SYR [Concomitant]
  17. METHOTREXATE [Concomitant]

REACTIONS (2)
  - GASTROINTESTINAL HAEMORRHAGE [None]
  - HAEMATOCHEZIA [None]
